FAERS Safety Report 9786602 (Version 1)
Quarter: 2013Q4

REPORT INFORMATION
  Report Type: Spontaneous
  Country: IT (occurrence: IT)
  Receive Date: 20131227
  Receipt Date: 20131227
  Transmission Date: 20140711
  Serious: Yes (Other)
  Sender: FDA-Public Use
  Company Number: IT-MYLANLABS-2013S1028280

PATIENT
  Age: 42 Year
  Sex: Male

DRUGS (6)
  1. METFORMIN [Suspect]
     Indication: TYPE 2 DIABETES MELLITUS
  2. METFORMIN [Suspect]
     Indication: TYPE 2 DIABETES MELLITUS
  3. LIRAGLUTIDE [Suspect]
     Indication: PRODUCT USED FOR UNKNOWN INDICATION
  4. LIRAGLUTIDE [Suspect]
     Indication: PRODUCT USED FOR UNKNOWN INDICATION
  5. ENALAPRIL [Concomitant]
     Indication: BLOOD PRESSURE INCREASED
  6. HYDROCHLOROTHIAZIDE [Concomitant]
     Indication: BLOOD PRESSURE INCREASED

REACTIONS (1)
  - Polyarthritis [Recovered/Resolved]
